FAERS Safety Report 4887473-5 (Version None)
Quarter: 2006Q1

REPORT INFORMATION
  Report Type: 
  Country: None (occurrence: None)
  Receive Date: 20060118
  Receipt Date: 20060105
  Transmission Date: 20060701
  Serious: No
  Sender: FDA-Public Use
  Company Number: 2005-136250-NL

PATIENT
  Age: 65 Year
  Sex: Male

DRUGS (16)
  1. MIRTAZAPINE [Suspect]
     Dosage: 30 MG; NI
  2. PRIMAXIN [Concomitant]
  3. AMPHOTERICIN B [Concomitant]
  4. FLUCONAZOLE [Concomitant]
  5. SELENIUM-ACE [Concomitant]
  6. PANTOPRAZOLE [Concomitant]
  7. HEPARIN [Concomitant]
  8. SIMVASTATIN [Concomitant]
  9. SALBUTAMOL [Concomitant]
  10. DOCUSATE SODIUM [Concomitant]
  11. METOCLOPRAMIDE [Concomitant]
  12. IPRATROPIUM BROMIDE [Concomitant]
  13. BUDESONIDE [Concomitant]
  14. ACETYLSALICYLIC [Concomitant]
  15. LEVOTHYROXINE SODIUM [Concomitant]
  16. INSULIN [Concomitant]

REACTIONS (1)
  - HYPERCALCAEMIA [None]
